FAERS Safety Report 22731901 (Version 2)
Quarter: 2024Q1

REPORT INFORMATION
  Report Type: Spontaneous
  Country: US (occurrence: US)
  Receive Date: 20230720
  Receipt Date: 20240117
  Transmission Date: 20240409
  Serious: No
  Sender: FDA-Public Use
  Company Number: US-NOVOPROD-1029721

PATIENT
  Age: 64 Year
  Sex: Female

DRUGS (1)
  1. OZEMPIC [Suspect]
     Active Substance: SEMAGLUTIDE
     Indication: Product used for unknown indication
     Dosage: .25MG
     Route: 058
     Dates: start: 20230110, end: 20230130

REACTIONS (2)
  - Pancreatic enzymes increased [Recovered/Resolved]
  - Abdominal pain [Recovered/Resolved]
